FAERS Safety Report 7012493-4 (Version None)
Quarter: 2010Q3

REPORT INFORMATION
  Report Type: 
  Country: None (occurrence: None)
  Receive Date: 20100924
  Receipt Date: 20100914
  Transmission Date: 20110219
  Serious: Yes (Hospitalization)
  Sender: FDA-Public Use
  Company Number: US-SANOFI-AVENTIS-2010SA055623

PATIENT
  Age: 55 Year
  Sex: Male
  Weight: 68 kg

DRUGS (14)
  1. LOVENOX [Suspect]
     Route: 058
     Dates: start: 20071212, end: 20080105
  2. HEPARIN [Suspect]
     Indication: ENDOTRACHEAL INTUBATION
     Dates: start: 20080104
  3. MAGNESIUM SULFATE [Concomitant]
  4. FENTANYL CITRATE [Concomitant]
  5. FLAGYL [Concomitant]
  6. ZOSYN [Concomitant]
  7. PANTOPRAZOLE [Concomitant]
  8. FLUCONAZOLE [Concomitant]
  9. SYNTHROID [Concomitant]
  10. ALBUTEROL SULFATE AND IPRATROPIUM BROMIDE [Concomitant]
  11. POTASSIUM CHLORIDE [Concomitant]
  12. CALCIUM GLUCONATE [Concomitant]
  13. DIPHENHYDRAMINE HCL [Concomitant]
  14. LEPIRUDIN [Concomitant]
     Dates: start: 20080109, end: 20080115

REACTIONS (4)
  - HEPARIN-INDUCED THROMBOCYTOPENIA [None]
  - METABOLIC ENCEPHALOPATHY [None]
  - MULTI-ORGAN FAILURE [None]
  - OEDEMA [None]
